FAERS Safety Report 5403939-3 (Version None)
Quarter: 2007Q3

REPORT INFORMATION
  Report Type: 
  Country: None (occurrence: None)
  Receive Date: 20070802
  Receipt Date: 20070726
  Transmission Date: 20080115
  Serious: Yes (Hospitalization)
  Sender: FDA-Public Use
  Company Number: CN-BAYER-200714337GDS

PATIENT
  Age: 80 Year
  Sex: Female

DRUGS (1)
  1. NIMOTOP [Suspect]
     Indication: CEREBRAL HAEMORRHAGE
     Route: 042
     Dates: start: 20070720, end: 20070722

REACTIONS (5)
  - ALTERED STATE OF CONSCIOUSNESS [None]
  - BLOOD PRESSURE FLUCTUATION [None]
  - HEADACHE [None]
  - NAUSEA [None]
  - PYREXIA [None]
